FAERS Safety Report 5442458-5 (Version None)
Quarter: 2007Q3

REPORT INFORMATION
  Report Type: 
  Country: None (occurrence: None)
  Receive Date: 20070904
  Receipt Date: 20070823
  Transmission Date: 20080115
  Serious: Yes (Other)
  Sender: FDA-Public Use
  Company Number: GB-PFIZER INC-2007071888

PATIENT
  Age: 49 Year
  Sex: Female
  Weight: 60 kg

DRUGS (3)
  1. VARENICLINE [Suspect]
     Indication: SMOKING CESSATION THERAPY
     Route: 048
     Dates: start: 20070612, end: 20070701
  2. CODEINE PHOSPHATE AND ACETAMINOPHEN [Concomitant]
     Indication: PERIARTHRITIS
     Route: 048
  3. ISTIN [Concomitant]
     Indication: HYPERTENSION
     Route: 048

REACTIONS (6)
  - CONSTIPATION [None]
  - DYSGEUSIA [None]
  - FATIGUE [None]
  - OEDEMA PERIPHERAL [None]
  - PARAESTHESIA ORAL [None]
  - URINE OUTPUT DECREASED [None]
